FAERS Safety Report 6921240-3 (Version None)
Quarter: 2010Q3

REPORT INFORMATION
  Report Type: 
  Country: None (occurrence: None)
  Receive Date: 20100812
  Receipt Date: 20100803
  Transmission Date: 20110219
  Serious: Yes (Hospitalization)
  Sender: FDA-Public Use
  Company Number: A0875220A

PATIENT
  Sex: Female

DRUGS (1)
  1. AVANDIA [Suspect]
     Route: 048
     Dates: start: 20060101, end: 20070101

REACTIONS (3)
  - CARDIAC FAILURE CONGESTIVE [None]
  - LOWER LIMB FRACTURE [None]
  - MYOCARDIAL INFARCTION [None]
